FAERS Safety Report 16630008 (Version 1)
Quarter: 2019Q3

REPORT INFORMATION
  Report Type: Spontaneous
  Country: DE (occurrence: DE)
  Receive Date: 20190725
  Receipt Date: 20190725
  Transmission Date: 20191004
  Serious: Yes (Death, Hospitalization)
  Sender: FDA-Public Use
  Company Number: DE-TEVA-2019-DE-1081304

PATIENT
  Age: 33 Year
  Sex: Male

DRUGS (6)
  1. METRONIDAZOLE. [Suspect]
     Active Substance: METRONIDAZOLE
     Indication: ANTIBIOTIC THERAPY
     Route: 042
  2. GEMCITABINE. [Suspect]
     Active Substance: GEMCITABINE
     Indication: CHOLANGIOCARCINOMA
     Dosage: RECEIVED IN AN OUTPATIENT SETTING ON DAY 1 AND DAY 8 OF CYCLE 1
     Route: 065
  3. VANCOMYCIN [Suspect]
     Active Substance: VANCOMYCIN
     Indication: ANTIBIOTIC THERAPY
     Route: 065
  4. CISPLATIN. [Suspect]
     Active Substance: CISPLATIN
     Indication: CHOLANGIOCARCINOMA
     Dosage: RECEIVED IN AN OUTPATIENT SETTING ON DAY 1 AND DAY 8 OF CYCLE 1
     Route: 065
  5. MEROPENEM. [Suspect]
     Active Substance: MEROPENEM
     Indication: ANTIBIOTIC THERAPY
     Route: 042
  6. LINEZOLID. [Suspect]
     Active Substance: LINEZOLID
     Indication: ANTIBIOTIC THERAPY
     Route: 065

REACTIONS (7)
  - Acute kidney injury [Not Recovered/Not Resolved]
  - Febrile neutropenia [Not Recovered/Not Resolved]
  - Bone marrow failure [Fatal]
  - Sepsis [Not Recovered/Not Resolved]
  - Enterococcal infection [Not Recovered/Not Resolved]
  - Neutropenic colitis [Not Recovered/Not Resolved]
  - Drug ineffective [Unknown]
